FAERS Safety Report 14942563 (Version 1)
Quarter: 2018Q2

REPORT INFORMATION
  Report Type: Spontaneous
  Country: LB (occurrence: LB)
  Receive Date: 20180528
  Receipt Date: 20180528
  Transmission Date: 20180711
  Serious: Yes (Other)
  Sender: FDA-Public Use
  Company Number: LB-ROCHE-2129347

PATIENT

DRUGS (1)
  1. CELLCEPT [Suspect]
     Active Substance: MYCOPHENOLATE MOFETIL\MYCOPHENOLATE MOFETIL HYDROCHLORIDE
     Indication: SCLERODERMA
     Route: 065

REACTIONS (4)
  - Coagulation factor VII level decreased [Unknown]
  - Product use in unapproved indication [Unknown]
  - Off label use [Unknown]
  - Coagulation factor deficiency [Unknown]
